FAERS Safety Report 25925658 (Version 3)
Quarter: 2025Q4

REPORT INFORMATION
  Report Type: Spontaneous
  Country: US (occurrence: US)
  Receive Date: 20251015
  Receipt Date: 20251106
  Transmission Date: 20260118
  Serious: No
  Sender: SANOFI AVENTIS
  Company Number: US-SA-2025SA305051

PATIENT
  Age: 19 Year
  Sex: Female

DRUGS (2)
  1. TZIELD [Suspect]
     Active Substance: TEPLIZUMAB-MZWV
     Dosage: 108.5 UG, QD
     Route: 065
     Dates: start: 20251008, end: 202510
  2. TZIELD [Suspect]
     Active Substance: TEPLIZUMAB-MZWV
     Dosage: 1720 UG, QD
     Route: 065
     Dates: start: 202510, end: 202510

REACTIONS (5)
  - Chills [Unknown]
  - Pyrexia [Unknown]
  - Headache [Unknown]
  - Hepatic enzyme increased [Unknown]
  - Streptococcal infection [Unknown]

NARRATIVE: CASE EVENT DATE: 20251001
